FAERS Safety Report 6992256-6 (Version None)
Quarter: 2010Q3

REPORT INFORMATION
  Report Type: 
  Country: None (occurrence: None)
  Receive Date: 20100915
  Receipt Date: 20100903
  Transmission Date: 20110219
  Serious: Yes (Hospitalization, Other)
  Sender: FDA-Public Use
  Company Number: 8038740

PATIENT
  Sex: Female
  Weight: 86 kg

DRUGS (16)
  1. CERTOLIZUMAB PEGOL (CDP870) [Suspect]
     Indication: RHEUMATOID ARTHRITIS
     Dosage: 400 MG 1X2 WEEKS SUBCUTANEOUS
     Route: 058
     Dates: start: 20050808, end: 20060724
  2. CERTOLIZUMAB PEGOL (CDP870) [Suspect]
     Indication: RHEUMATOID ARTHRITIS
     Dosage: 400 MG 1X2 WEEKS SUBCUTANEOUS
     Route: 058
     Dates: start: 20060808, end: 20071127
  3. CERTOLIZUMAB PEGOL (CDP870) [Suspect]
     Indication: RHEUMATOID ARTHRITIS
     Dosage: 400 MG 1X2 WEEKS SUBCUTANEOUS
     Route: 058
     Dates: start: 20080106, end: 20081012
  4. MICROPIRIN [Concomitant]
  5. METHOTREXATE [Concomitant]
  6. PRILOSEC [Concomitant]
  7. GLUCOPHAGE [Concomitant]
  8. VASCASE PLUS [Concomitant]
  9. CIPRALEX [Concomitant]
  10. AMLODIPINE [Concomitant]
  11. LIPITOR [Concomitant]
  12. AMARYL [Concomitant]
  13. CARDILOC [Concomitant]
  14. EQUIN [Concomitant]
  15. CILAZAPRIL [Concomitant]
  16. DISOTHIAZIDE [Concomitant]

REACTIONS (8)
  - BLOOD GLUCOSE INCREASED [None]
  - CELLULITIS [None]
  - INCORRECT DRUG ADMINISTRATION DURATION [None]
  - NASAL ABSCESS [None]
  - NASAL VESTIBULITIS [None]
  - PLEURITIC PAIN [None]
  - PNEUMONIA [None]
  - STAPHYLOCOCCUS TEST POSITIVE [None]
